FAERS Safety Report 7647464-8 (Version None)
Quarter: 2011Q3

REPORT INFORMATION
  Report Type: 
  Country: None (occurrence: None)
  Receive Date: 20110801
  Receipt Date: 20110720
  Transmission Date: 20111222
  Serious: Yes (Hospitalization)
  Sender: FDA-Public Use
  Company Number: GB-ASTRAZENECA-2009SE05191

PATIENT
  Sex: Female

DRUGS (3)
  1. FASLODEX [Suspect]
     Route: 030
     Dates: start: 20080820
  2. ARIMIDEX [Suspect]
     Indication: BREAST CANCER METASTATIC
     Route: 048
     Dates: start: 20080807
  3. FASLODEX [Suspect]
     Indication: BREAST CANCER METASTATIC
     Dosage: LOADING DOSE
     Route: 030
     Dates: start: 20080807, end: 20080807

REACTIONS (3)
  - PULMONARY OEDEMA [None]
  - MYOCARDIAL INFARCTION [None]
  - DYSPNOEA [None]
